FAERS Safety Report 10173045 (Version 1)
Quarter: 2014Q2

REPORT INFORMATION
  Report Type: Spontaneous
  Country: US (occurrence: None)
  Receive Date: 20140423
  Receipt Date: 20140423
  Transmission Date: 20141212
  Serious: Yes (Disabling)
  Sender: FDA-Public Use
  Company Number: ALL1-2013-06642

PATIENT
  Age: 73 Year
  Sex: Male

DRUGS (1)
  1. VPRIV [Suspect]
     Indication: GAUCHER^S DISEASE
     Dosage: OTHER (TWICE MONTHLY)
     Route: 041
     Dates: start: 20100614

REACTIONS (1)
  - Back pain [None]
